FAERS Safety Report 9002161 (Version 1)
Quarter: 2013Q1

REPORT INFORMATION
  Report Type: Spontaneous
  Country: US (occurrence: US)
  Receive Date: 20130107
  Receipt Date: 20130107
  Transmission Date: 20140127
  Serious: No
  Sender: FDA-Public Use
  Company Number: US-009507513-1212USA010829

PATIENT
  Sex: Male

DRUGS (4)
  1. TIMOPTIC [Suspect]
     Indication: GLAUCOMA
     Dosage: UNK, BID
     Route: 047
     Dates: start: 201206, end: 201208
  2. CLOMIPRAMINE HYDROCHLORIDE [Concomitant]
  3. EFFEXOR [Concomitant]
  4. SEROQUEL [Concomitant]

REACTIONS (3)
  - Madarosis [Recovering/Resolving]
  - Eyelid oedema [Recovering/Resolving]
  - Skin exfoliation [Recovering/Resolving]
